FAERS Safety Report 4538645-0 (Version None)
Quarter: 2004Q4

REPORT INFORMATION
  Report Type: 
  Country: None (occurrence: None)
  Receive Date: 20041223
  Receipt Date: 20041208
  Transmission Date: 20050328
  Serious: Yes (Other)
  Sender: FDA-Public Use
  Company Number: 2004-DE-06151GD(0)

PATIENT
  Age: 33 Year
  Sex: Female

DRUGS (2)
  1. NEVIRAPINE (NEVIRAPINE) (NR) [Suspect]
     Indication: HIV INFECTION
  2. STAVUDINE (STAVUDINE) (NR) [Suspect]
     Indication: HIV INFECTION

REACTIONS (3)
  - CUTANEOUS LUPUS ERYTHEMATOSUS [None]
  - SKIN ATROPHY [None]
  - SKIN DESQUAMATION [None]
